FAERS Safety Report 5305999-7 (Version None)
Quarter: 2007Q1

REPORT INFORMATION
  Report Type: 
  Country: None (occurrence: None)
  Receive Date: 20070201
  Receipt Date: 20061204
  Transmission Date: 20070707
  Serious: No
  Sender: FDA-Public Use
  Company Number: 2006PV026315

PATIENT
  Age: 61 Year
  Sex: Female
  Weight: 79.3795 kg

DRUGS (5)
  1. BYETTA [Suspect]
     Indication: DIABETES MELLITUS NON-INSULIN-DEPENDENT
     Dosage: SEE IMAGE
     Route: 048
     Dates: start: 20051201, end: 20060101
  2. BYETTA [Suspect]
     Indication: DIABETES MELLITUS NON-INSULIN-DEPENDENT
     Dosage: SEE IMAGE
     Route: 048
     Dates: start: 20060101
  3. AGGRENOX [Concomitant]
  4. HUMULIN 70/30 [Concomitant]
  5. SYNTHROID [Concomitant]

REACTIONS (3)
  - INJECTION SITE HAEMORRHAGE [None]
  - THYROID FUNCTION TEST ABNORMAL [None]
  - WEIGHT DECREASED [None]
